FAERS Safety Report 7735016-0 (Version None)
Quarter: 2011Q3

REPORT INFORMATION
  Report Type: 
  Country: None (occurrence: None)
  Receive Date: 20110907
  Receipt Date: 20110826
  Transmission Date: 20111222
  Serious: Yes (Other)
  Sender: FDA-Public Use
  Company Number: US-ELI_LILLY_AND_COMPANY-US201108008872

PATIENT
  Age: 74 Year
  Sex: Female

DRUGS (5)
  1. CYMBALTA [Suspect]
     Dosage: 30 MG, QOD
     Dates: start: 20110805
  2. CYMBALTA [Suspect]
     Indication: DEPRESSION
     Dosage: 20 MG, BID
     Dates: start: 20110301
  3. CYMBALTA [Suspect]
     Dosage: 30 MG, QD
  4. CYMBALTA [Suspect]
     Dosage: 30 MG, UNK
     Dates: start: 20110819
  5. CYMBALTA [Suspect]
     Dosage: 60 MG, QD

REACTIONS (3)
  - HYPERHIDROSIS [None]
  - CATARACT [None]
  - DRUG INEFFECTIVE [None]
